FAERS Safety Report 23021145 (Version 3)
Quarter: 2023Q4

REPORT INFORMATION
  Report Type: Spontaneous
  Country: CL (occurrence: CL)
  Receive Date: 20231003
  Receipt Date: 20231205
  Transmission Date: 20240109
  Serious: No
  Sender: FDA-Public Use
  Company Number: CL-PFIZER INC-PV202300152889

PATIENT
  Age: 11 Year
  Sex: Female

DRUGS (1)
  1. GENOTROPIN [Suspect]
     Active Substance: SOMATROPIN
     Dosage: UNK, DAILY

REACTIONS (2)
  - Device difficult to use [Unknown]
  - Needle issue [Unknown]
